FAERS Safety Report 23442946 (Version 1)
Quarter: 2024Q1

REPORT INFORMATION
  Report Type: Spontaneous
  Country: US (occurrence: None)
  Receive Date: 20240124
  Receipt Date: 20240124
  Transmission Date: 20240410
  Serious: Yes (Life-Threatening, Hospitalization)
  Sender: FDA-Public Use
  Company Number: None

PATIENT
  Age: 62 Year
  Sex: Male

DRUGS (1)
  1. LISINOPRIL [Suspect]
     Active Substance: LISINOPRIL
     Dates: start: 20210808

REACTIONS (10)
  - Cough [None]
  - Throat lesion [None]
  - Rhinorrhoea [None]
  - Dyspnoea [None]
  - Swelling [None]
  - Throat tightness [None]
  - Pharyngeal inflammation [None]
  - Speech disorder [None]
  - Tenderness [None]
  - Angioedema [None]

NARRATIVE: CASE EVENT DATE: 20240120
